FAERS Safety Report 9835180 (Version 1)
Quarter: 2014Q1

REPORT INFORMATION
  Report Type: Spontaneous
  Country: US (occurrence: US)
  Receive Date: 20140122
  Receipt Date: 20140122
  Transmission Date: 20141002
  Serious: No
  Sender: FDA-Public Use
  Company Number: US-BRISTOL-MYERS SQUIBB COMPANY-19846732

PATIENT
  Age: 83 Year
  Sex: Male
  Weight: 77.1 kg

DRUGS (9)
  1. ELIQUIS [Suspect]
     Indication: ATRIAL FIBRILLATION
     Dates: start: 2013
  2. ATORVASTATIN [Concomitant]
  3. METOPROLOL [Concomitant]
  4. NIASPAN [Concomitant]
     Dosage: ER
  5. METFORMIN [Concomitant]
  6. LISINOPRIL [Concomitant]
  7. RAPAFLO [Concomitant]
  8. VITAMIN B12 [Concomitant]
  9. VITAMIN D3 [Concomitant]

REACTIONS (1)
  - Diarrhoea [Unknown]
